FAERS Safety Report 10286373 (Version 1)
Quarter: 2014Q3

REPORT INFORMATION
  Report Type: Spontaneous
  Country: GB (occurrence: None)
  Receive Date: 20140707
  Receipt Date: 20140707
  Transmission Date: 20150326
  Serious: Yes (Hospitalization)
  Sender: FDA-Public Use
  Company Number: 2234182

PATIENT
  Age: 66 Year
  Sex: Male
  Weight: 70 kg

DRUGS (10)
  1. TIOTROPIUM [Concomitant]
     Active Substance: TIOTROPIUM
  2. PROPOFOL. [Concomitant]
     Active Substance: PROPOFOL
  3. SIMVASTATIN. [Concomitant]
     Active Substance: SIMVASTATIN
  4. SERETIDE [Concomitant]
     Active Substance: FLUTICASONE FUROATE\SALMETEROL XINAFOATE
  5. LATANOPROST. [Concomitant]
     Active Substance: LATANOPROST
  6. DEXMEDETOMIDINE HYDROCHLORIDE [Suspect]
     Active Substance: DEXMEDETOMIDINE HYDROCHLORIDE
     Indication: SEDATION
     Dosage: NOT OTHEWISE SPECIFIED
     Route: 042
     Dates: start: 20140214
  7. ASPIRIN. [Concomitant]
     Active Substance: ASPIRIN
  8. SALBUTAMOL [Concomitant]
     Active Substance: ALBUTEROL
  9. REMIFENTANIL [Concomitant]
     Active Substance: REMIFENTANIL
  10. CLONIDINE. [Concomitant]
     Active Substance: CLONIDINE

REACTIONS (3)
  - Agitation [None]
  - Weaning failure [None]
  - Drug ineffective [None]
